FAERS Safety Report 12842567 (Version 2)
Quarter: 2016Q4

REPORT INFORMATION
  Report Type: Report from Study
  Country: KR (occurrence: KR)
  Receive Date: 20161013
  Receipt Date: 20161017
  Transmission Date: 20170207
  Serious: Yes (Hospitalization, Other)
  Sender: FDA-Public Use
  Company Number: KR-BRISTOL-MYERS SQUIBB COMPANY-BMS-2016-083639

PATIENT
  Age: 66 Year
  Sex: Male
  Weight: 67.3 kg

DRUGS (20)
  1. NIVOLUMAB [Suspect]
     Active Substance: NIVOLUMAB
     Dosage: 206 MG, UNK
     Route: 042
     Dates: start: 20160609, end: 20160609
  2. NIVOLUMAB [Suspect]
     Active Substance: NIVOLUMAB
     Dosage: 206 MG, UNK
     Route: 042
     Dates: start: 20160621, end: 20160621
  3. NIVOLUMAB [Suspect]
     Active Substance: NIVOLUMAB
     Dosage: 206 MG, UNK
     Route: 042
     Dates: start: 20160721, end: 20160721
  4. NIVOLUMAB [Suspect]
     Active Substance: NIVOLUMAB
     Dosage: 206 MG, UNK
     Route: 042
     Dates: start: 20160804, end: 20160804
  5. ASPIRIN                            /00002701/ [Concomitant]
     Active Substance: ASPIRIN
     Indication: PRODUCT USED FOR UNKNOWN INDICATION
     Dosage: UNK
     Route: 065
     Dates: start: 2011
  6. IPILIMUMAB [Suspect]
     Active Substance: IPILIMUMAB
     Dosage: 69 MG, UNK
     Route: 042
     Dates: start: 20160609, end: 20160609
  7. METFORMIN [Concomitant]
     Active Substance: METFORMIN HYDROCHLORIDE
     Indication: PRODUCT USED FOR UNKNOWN INDICATION
     Dosage: UNK
     Route: 065
     Dates: start: 2011
  8. NIVOLUMAB [Suspect]
     Active Substance: NIVOLUMAB
     Dosage: 206 MG, UNK
     Route: 042
     Dates: start: 20160510, end: 20160510
  9. NIVOLUMAB [Suspect]
     Active Substance: NIVOLUMAB
     Dosage: 206 MG, UNK
     Route: 042
     Dates: start: 20160524, end: 20160524
  10. IPILIMUMAB [Suspect]
     Active Substance: IPILIMUMAB
     Indication: NON-SMALL CELL LUNG CANCER
     Dosage: 69 MG, UNK
     Route: 042
     Dates: start: 20160425, end: 20160425
  11. IPILIMUMAB [Suspect]
     Active Substance: IPILIMUMAB
     Dosage: 69 MG, UNK
     Route: 042
     Dates: start: 20160830, end: 20160830
  12. AMLODIPIN/ATORVASTATIN [Concomitant]
     Indication: PRODUCT USED FOR UNKNOWN INDICATION
     Dosage: UNK
     Route: 065
     Dates: start: 2011
  13. THIOCTIC ACID [Concomitant]
     Active Substance: THIOCTIC ACID
     Indication: PRODUCT USED FOR UNKNOWN INDICATION
     Dosage: UNK
     Route: 065
     Dates: start: 2011
  14. NIVOLUMAB [Suspect]
     Active Substance: NIVOLUMAB
     Indication: NON-SMALL CELL LUNG CANCER
     Dosage: 206 MG, UNK
     Route: 042
     Dates: start: 20160425, end: 20160425
  15. NIVOLUMAB [Suspect]
     Active Substance: NIVOLUMAB
     Dosage: 206 MG, UNK
     Route: 042
     Dates: start: 20160830, end: 20160830
  16. ACETYLCYSTEINE. [Concomitant]
     Active Substance: ACETYLCYSTEINE
     Indication: PRODUCT USED FOR UNKNOWN INDICATION
     Dosage: 600 MG, UNK
     Route: 065
     Dates: start: 20160609
  17. IPILIMUMAB [Suspect]
     Active Substance: IPILIMUMAB
     Dosage: 69 MG, UNK
     Route: 042
     Dates: start: 20160721, end: 20160721
  18. IRBESARTAN AND HYDROCHLOROTHIAZIDE [Concomitant]
     Active Substance: HYDROCHLOROTHIAZIDE\IRBESARTAN
     Indication: PRODUCT USED FOR UNKNOWN INDICATION
     Dosage: UNK
     Route: 065
     Dates: start: 2011
  19. CODAEWON FORTE [Concomitant]
     Indication: PRODUCT USED FOR UNKNOWN INDICATION
     Dosage: 60 ML, UNK
     Route: 065
     Dates: start: 20160510
  20. DAPAGLIFLOZIN [Concomitant]
     Active Substance: DAPAGLIFLOZIN
     Indication: PRODUCT USED FOR UNKNOWN INDICATION
     Dosage: UNK
     Route: 065
     Dates: start: 2011

REACTIONS (1)
  - Autoimmune hepatitis [Not Recovered/Not Resolved]

NARRATIVE: CASE EVENT DATE: 20161004
